FAERS Safety Report 9296803 (Version 5)
Quarter: 2014Q4

REPORT INFORMATION
  Report Type: Report from Study
  Country: MX (occurrence: MX)
  Receive Date: 20130517
  Receipt Date: 20141024
  Transmission Date: 20150529
  Serious: Yes (Other)
  Sender: FDA-Public Use
  Company Number: PHHY2012MX116881

PATIENT
  Age: 32 Year
  Sex: Male
  Weight: 70 kg

DRUGS (8)
  1. GILENYA [Suspect]
     Active Substance: FINGOLIMOD HYDROCHLORIDE
     Dosage: 0.5 MG, BID
     Route: 048
     Dates: start: 201403, end: 201403
  2. BREDELIN [Concomitant]
     Dates: start: 20130621, end: 20130630
  3. PARACETAMOL [Concomitant]
     Active Substance: ACETAMINOPHEN
     Indication: PAIN
     Dates: start: 20130621, end: 20130630
  4. KETOPROFENO [Concomitant]
  5. TEMPRA [Concomitant]
     Active Substance: ACETAMINOPHEN
  6. NURO-B                             /06116001/ [Concomitant]
     Dates: start: 20131115, end: 20131115
  7. GILENYA [Suspect]
     Active Substance: FINGOLIMOD HYDROCHLORIDE
     Indication: MULTIPLE SCLEROSIS
     Dosage: 0.5 MG, QD
     Route: 048
     Dates: start: 20120925, end: 20140909
  8. RAPIX [Concomitant]
     Indication: PAIN

REACTIONS (18)
  - Fracture [Unknown]
  - Visual impairment [Recovering/Resolving]
  - Paraesthesia [Unknown]
  - Osteoporosis [Not Recovered/Not Resolved]
  - Fatigue [Not Recovered/Not Resolved]
  - Dizziness [Not Recovered/Not Resolved]
  - Multiple sclerosis relapse [Recovering/Resolving]
  - Mood altered [Not Recovered/Not Resolved]
  - Stress [Not Recovered/Not Resolved]
  - Hot flush [Not Recovered/Not Resolved]
  - Hypoaesthesia [Not Recovered/Not Resolved]
  - Diplopia [Not Recovered/Not Resolved]
  - Tremor [Recovered/Resolved]
  - Bone disorder [Not Recovered/Not Resolved]
  - Blepharospasm [Recovered/Resolved]
  - Visual acuity reduced [Not Recovered/Not Resolved]
  - Feeling abnormal [Not Recovered/Not Resolved]
  - Accidental overdose [Unknown]

NARRATIVE: CASE EVENT DATE: 20121213
